FAERS Safety Report 18052235 (Version 1)
Quarter: 2020Q3

REPORT INFORMATION
  Report Type: Spontaneous
  Country: US (occurrence: US)
  Receive Date: 20200721
  Receipt Date: 20200721
  Transmission Date: 20201103
  Serious: Yes (Hospitalization, Other)
  Sender: FDA-Public Use
  Company Number: US-ACELLA PHARMACEUTICALS, LLC-2087583

PATIENT
  Age: 67 Year
  Sex: Female
  Weight: 75.91 kg

DRUGS (1)
  1. NP THYROID [Suspect]
     Active Substance: LEVOTHYROXINE\LIOTHYRONINE
     Indication: HYPOTHYROIDISM
     Route: 048
     Dates: start: 2018

REACTIONS (9)
  - Fatigue [Unknown]
  - Arterial occlusive disease [Unknown]
  - Heart valve replacement [Unknown]
  - Dyspnoea [Unknown]
  - Arterial occlusive disease [Unknown]
  - Mastectomy [Unknown]
  - Palpitations [Unknown]
  - Malaise [Unknown]
  - Stent placement [Unknown]

NARRATIVE: CASE EVENT DATE: 2020
